FAERS Safety Report 5959180-9 (Version None)
Quarter: 2008Q4

REPORT INFORMATION
  Report Type: 
  Country: None (occurrence: None)
  Receive Date: 20081120
  Receipt Date: 20080513
  Transmission Date: 20090506
  Serious: No
  Sender: FDA-Public Use
  Company Number: A0727693A

PATIENT
  Age: 51 Year
  Sex: Female

DRUGS (16)
  1. WELLBUTRIN SR [Suspect]
     Indication: DEPRESSION
     Dosage: 150MG TWICE PER DAY
     Route: 048
     Dates: start: 19990101
  2. WELLBUTRIN XL [Suspect]
     Indication: DEPRESSION
     Dosage: 150MG PER DAY
     Route: 048
     Dates: start: 20080101, end: 20080505
  3. ADDERALL XR 20 [Suspect]
     Dosage: 20MG PER DAY
     Route: 048
  4. GABITRIL [Suspect]
     Indication: ANXIETY
     Dosage: 2MG VARIABLE DOSE
     Route: 065
     Dates: start: 19990101, end: 20060801
  5. KLONOPIN [Concomitant]
  6. PROTONIX [Concomitant]
  7. TOPAMAX [Concomitant]
  8. ESTRADIOL [Concomitant]
  9. SOY ISOFLAVIN [Concomitant]
  10. CALCIUM [Concomitant]
  11. LASIX [Concomitant]
  12. COD LIVER OIL [Concomitant]
  13. LIBRAX [Concomitant]
  14. ADVAIR DISKUS 100/50 [Concomitant]
  15. ALBUTEROL [Concomitant]
  16. FLUTICASONE PROPIONATE [Concomitant]

REACTIONS (10)
  - ABDOMINAL DISTENSION [None]
  - ABNORMAL BEHAVIOUR [None]
  - CONSTIPATION [None]
  - DIARRHOEA [None]
  - INSOMNIA [None]
  - MENTAL IMPAIRMENT [None]
  - MIGRAINE [None]
  - NAIL PICKING [None]
  - WEIGHT DECREASED [None]
  - WEIGHT INCREASED [None]
